FAERS Safety Report 5787438-5 (Version None)
Quarter: 2008Q2

REPORT INFORMATION
  Report Type: 
  Country: None (occurrence: None)
  Receive Date: 20080625
  Receipt Date: 20080617
  Transmission Date: 20081010
  Serious: Yes (Other)
  Sender: FDA-Public Use
  Company Number: US-BAYER-200812514BCC

PATIENT
  Sex: Female

DRUGS (1)
  1. ORIGINAL ALKA SELTZER TABLETS [Suspect]
     Indication: ABDOMINAL PAIN UPPER
     Route: 048

REACTIONS (1)
  - GASTRIC HAEMORRHAGE [None]
